FAERS Safety Report 23957295 (Version 3)
Quarter: 2024Q3

REPORT INFORMATION
  Report Type: Spontaneous
  Country: JP (occurrence: JP)
  Receive Date: 20240610
  Receipt Date: 20240819
  Transmission Date: 20241016
  Serious: Yes (Hospitalization, Other)
  Sender: CSL BEHRING
  Company Number: JP-BEH-2024173430

PATIENT
  Age: 12 Year
  Sex: Male
  Weight: 33 kg

DRUGS (6)
  1. IDELVION [Suspect]
     Active Substance: COAGULATION FACTOR IX RECOMBINANT HUMAN
     Indication: Haemorrhage prophylaxis
     Dosage: 1500 IU, QW
     Route: 042
     Dates: start: 202003, end: 20240402
  2. IDELVION [Suspect]
     Active Substance: COAGULATION FACTOR IX RECOMBINANT HUMAN
     Indication: Haemorrhage prophylaxis
     Dosage: 1500 IU, QW
     Route: 042
     Dates: start: 202003, end: 20240402
  3. IDELVION [Suspect]
     Active Substance: COAGULATION FACTOR IX RECOMBINANT HUMAN
     Indication: Haemarthrosis
     Dosage: 2000 IU, QW
     Route: 042
     Dates: start: 20240403, end: 20240616
  4. IDELVION [Suspect]
     Active Substance: COAGULATION FACTOR IX RECOMBINANT HUMAN
     Indication: Haemarthrosis
     Dosage: 2000 IU, QW
     Route: 042
     Dates: start: 20240403, end: 20240616
  5. IDELVION [Suspect]
     Active Substance: COAGULATION FACTOR IX RECOMBINANT HUMAN
     Dosage: UNK, OD
     Route: 065
  6. IDELVION [Suspect]
     Active Substance: COAGULATION FACTOR IX RECOMBINANT HUMAN
     Dosage: UNK, OD
     Route: 065

REACTIONS (11)
  - Haemarthrosis [Recovering/Resolving]
  - Haemarthrosis [Recovering/Resolving]
  - Haemarthrosis [Recovering/Resolving]
  - Haemarthrosis [Recovering/Resolving]
  - Haemarthrosis [Recovering/Resolving]
  - Haemarthrosis [Not Recovered/Not Resolved]
  - Joint swelling [Unknown]
  - Injury [Unknown]
  - Injury [Unknown]
  - Injury [Unknown]
  - Injury [Unknown]

NARRATIVE: CASE EVENT DATE: 20230523
